FAERS Safety Report 6321435-6 (Version None)
Quarter: 2009Q3

REPORT INFORMATION
  Report Type: 
  Country: None (occurrence: None)
  Receive Date: 20090822
  Receipt Date: 20090122
  Transmission Date: 20100115
  Serious: No
  Sender: FDA-Public Use
  Company Number: US-ABBOTT-09P-163-0499706-00

PATIENT
  Sex: Male

DRUGS (16)
  1. NIASPAN [Suspect]
     Indication: HIGH DENSITY LIPOPROTEIN DECREASED
     Route: 048
     Dates: start: 20090101
  2. NIASPAN [Suspect]
     Indication: BLOOD TRIGLYCERIDES INCREASED
  3. PRAVACHOL [Concomitant]
     Indication: DRUG USE FOR UNKNOWN INDICATION
  4. ZETIA [Concomitant]
     Indication: DRUG USE FOR UNKNOWN INDICATION
  5. TRICOR [Concomitant]
     Indication: DRUG USE FOR UNKNOWN INDICATION
  6. METOPROLOL [Concomitant]
     Indication: DRUG USE FOR UNKNOWN INDICATION
  7. LISINOPRIL [Concomitant]
     Indication: DRUG USE FOR UNKNOWN INDICATION
  8. ULTRACET [Concomitant]
     Indication: DRUG USE FOR UNKNOWN INDICATION
  9. TRAZODONE HCL [Concomitant]
     Indication: DRUG USE FOR UNKNOWN INDICATION
  10. LEXAPRO [Concomitant]
     Indication: DRUG USE FOR UNKNOWN INDICATION
  11. DEPAKOTE [Concomitant]
     Indication: DRUG USE FOR UNKNOWN INDICATION
  12. GABAPENTIN [Concomitant]
     Indication: DRUG USE FOR UNKNOWN INDICATION
  13. LEXIVA [Concomitant]
     Indication: DRUG USE FOR UNKNOWN INDICATION
  14. NORVIR [Concomitant]
     Indication: DRUG USE FOR UNKNOWN INDICATION
  15. SUSTIVA [Concomitant]
     Indication: DRUG USE FOR UNKNOWN INDICATION
  16. BUPROPION [Concomitant]
     Indication: DRUG USE FOR UNKNOWN INDICATION

REACTIONS (2)
  - FLUSHING [None]
  - HEADACHE [None]
